FAERS Safety Report 25257298 (Version 2)
Quarter: 2025Q2

REPORT INFORMATION
  Report Type: Spontaneous
  Country: US (occurrence: US)
  Receive Date: 20250430
  Receipt Date: 20250521
  Transmission Date: 20250716
  Serious: No
  Sender: PFIZER
  Company Number: US-PFIZER INC-202500090702

PATIENT
  Age: 14 Year
  Sex: Male

DRUGS (8)
  1. LITFULO [Suspect]
     Active Substance: RITLECITINIB TOSYLATE
     Dosage: 50 MG, DAILY
     Route: 048
     Dates: start: 20250408
  2. PREDNISONE [Concomitant]
     Active Substance: PREDNISONE
  3. EPINEPHRINE [Concomitant]
     Active Substance: EPINEPHRINE
  4. ATOMOXETINE [Concomitant]
     Active Substance: ATOMOXETINE
  5. VYVANSE [Concomitant]
     Active Substance: LISDEXAMFETAMINE DIMESYLATE
  6. CETIRIZINE [Concomitant]
     Active Substance: CETIRIZINE HYDROCHLORIDE
  7. MUPIROCIN [Concomitant]
     Active Substance: MUPIROCIN
  8. LIDO/PRILOCAINE [Concomitant]

REACTIONS (4)
  - Rash [Unknown]
  - Skin irritation [Unknown]
  - Product dose omission issue [Unknown]
  - Product prescribing error [Unknown]
